FAERS Safety Report 9723644 (Version 1)
Quarter: 2013Q4

REPORT INFORMATION
  Report Type: Spontaneous
  Country: US (occurrence: US)
  Receive Date: 20131202
  Receipt Date: 20131202
  Transmission Date: 20140711
  Serious: No
  Sender: FDA-Public Use
  Company Number: US-009507513-1312USA000037

PATIENT
  Age: 18 Year
  Sex: Female

DRUGS (5)
  1. CLARITIN-D-24 [Suspect]
     Indication: EYE PRURITUS
     Dosage: 10 MG, UNK
     Route: 048
  2. CLARITIN-D-24 [Suspect]
     Indication: LACRIMATION INCREASED
  3. CLARITIN-D-24 [Suspect]
     Indication: RHINORRHOEA
  4. CLARITIN-D-24 [Suspect]
     Indication: THROAT IRRITATION
  5. CLARITIN-D-24 [Suspect]
     Indication: COUGH

REACTIONS (1)
  - Feeling jittery [Unknown]
